FAERS Safety Report 9177569 (Version 2)
Quarter: 2012Q4

REPORT INFORMATION
  Report Type: 
  Country: GB (occurrence: GB)
  Receive Date: 20121002
  Receipt Date: 20121025
  Transmission Date: 20130627
  Serious: Yes (Other)
  Sender: FDA-Public Use
  Company Number: GB-BRACCO-000574

PATIENT
  Age: 5 Year

DRUGS (2)
  1. NIOPAM [Suspect]
     Indication: ARTERIOGRAM CORONARY
     Route: 013
  2. NIOPAM [Suspect]
     Indication: ATRIAL SEPTAL DEFECT
     Route: 013

REACTIONS (4)
  - Overdose [Unknown]
  - Cerebral ischaemia [Recovered/Resolved]
  - Hemiparesis [Recovered/Resolved]
  - Hyporeflexia [Recovered/Resolved]
